FAERS Safety Report 4971151-8 (Version None)
Quarter: 2006Q1

REPORT INFORMATION
  Report Type: 
  Country: None (occurrence: None)
  Receive Date: 20060223
  Receipt Date: 20051014
  Transmission Date: 20060701
  Serious: Yes (Other)
  Sender: FDA-Public Use
  Company Number: HQWYE098219OCT05

PATIENT
  Age: 70 Year
  Sex: Female
  Weight: 69.1 kg

DRUGS (4)
  1. EFFEOR (VENLAFAXINE HYDROCHLORIDE, TABLET) [Suspect]
     Indication: DEPRESSION
     Dosage: 25 MG 1 X PER 1 DAY, ORAL
     Route: 048
     Dates: start: 20051010, end: 20051010
  2. OMEPRAZOLE [Concomitant]
  3. MULTIVITAMINS, PLAIN (MULTIVITAMINS PLAIN) [Concomitant]
  4. NORVASC [Concomitant]

REACTIONS (10)
  - BLOOD PRESSURE INCREASED [None]
  - DIARRHOEA [None]
  - DRY MOUTH [None]
  - DYSARTHRIA [None]
  - HEADACHE [None]
  - NAUSEA [None]
  - OROPHARYNGEAL SPASM [None]
  - SOMNOLENCE [None]
  - TREMOR [None]
  - YAWNING [None]
